FAERS Safety Report 21690972 (Version 3)
Quarter: 2023Q1

REPORT INFORMATION
  Report Type: Report from Study
  Country: US (occurrence: US)
  Receive Date: 20221207
  Receipt Date: 20230329
  Transmission Date: 20230418
  Serious: Yes (Other)
  Sender: FDA-Public Use
  Company Number: US-ABBVIE-22K-163-4533717-00

PATIENT
  Sex: Female
  Weight: 61.234 kg

DRUGS (23)
  1. HUMIRA [Suspect]
     Active Substance: ADALIMUMAB
     Indication: Crohn^s disease
     Dosage: CITRATE FREE
     Route: 058
     Dates: start: 202108, end: 202205
  2. HUMIRA [Suspect]
     Active Substance: ADALIMUMAB
     Route: 058
  3. BUPROPION [Concomitant]
     Active Substance: BUPROPION
     Indication: Death of relative
  4. Digestive Advantage Probiotic Schiff Vitamins [Concomitant]
     Indication: Vitamin supplementation
  5. PFIZER-BIONTECH COVID-19 VACCINE [Concomitant]
     Active Substance: TOZINAMERAN
     Indication: COVID-19 immunisation
     Dosage: TIME INTERVAL: 1 TOTAL: 1ST DOSE
     Route: 030
  6. PFIZER-BIONTECH COVID-19 VACCINE [Concomitant]
     Active Substance: TOZINAMERAN
     Indication: COVID-19 immunisation
     Dosage: TIME INTERVAL: 1 TOTAL: 2ND DOSE
     Route: 030
  7. PFIZER-BIONTECH COVID-19 VACCINE [Concomitant]
     Active Substance: TOZINAMERAN
     Indication: COVID-19 immunisation
     Dosage: TIME INTERVAL: 1 TOTAL: BOOSTER DOSE
     Route: 030
  8. VITAMIN B [Concomitant]
     Active Substance: VITAMIN B
     Indication: Vitamin supplementation
  9. IRON [Concomitant]
     Active Substance: IRON
     Indication: Mineral supplementation
     Dosage: 25 MG
  10. GABAPENTIN [Concomitant]
     Active Substance: GABAPENTIN
     Indication: Neuralgia
  11. BENZONATATE [Concomitant]
     Active Substance: BENZONATATE
     Indication: Nasal congestion
  12. CALCIUM [Concomitant]
     Active Substance: CALCIUM
     Indication: Mineral supplementation
  13. BISOPROLOL FUMARATE [Concomitant]
     Active Substance: BISOPROLOL FUMARATE
     Indication: Hypertension
  14. TRAMADOL HCL [Concomitant]
     Active Substance: TRAMADOL HYDROCHLORIDE
     Indication: Pain
  15. ROPINIROLE HYDROCHLORIDE [Concomitant]
     Active Substance: ROPINIROLE HYDROCHLORIDE
     Indication: Restless legs syndrome
  16. DULOXETINE [Concomitant]
     Active Substance: DULOXETINE
     Indication: Fibromyalgia
  17. MECLIZINE [Concomitant]
     Active Substance: MECLIZINE HYDROCHLORIDE
     Indication: Dizziness
  18. TIZANIDINE HYDROCHLORIDE [Concomitant]
     Active Substance: TIZANIDINE HYDROCHLORIDE
     Indication: Muscle spasms
  19. OMEPRAZOLE [Concomitant]
     Active Substance: OMEPRAZOLE
     Indication: Gastric pH decreased
  20. OLMESARTAN [Concomitant]
     Active Substance: OLMESARTAN
     Indication: Hypertension
  21. VITAMIN D [Concomitant]
     Active Substance: VITAMIN D NOS
     Indication: Vitamin supplementation
  22. OXYBUTYNIN [Concomitant]
     Active Substance: OXYBUTYNIN
     Indication: Hyperhidrosis
     Dosage: 500 MG
  23. LEVOTHYROXINE [Concomitant]
     Active Substance: LEVOTHYROXINE
     Indication: Thyroid disorder

REACTIONS (35)
  - Lower limb fracture [Recovering/Resolving]
  - Facial pain [Recovered/Resolved]
  - Osteopenia [Not Recovered/Not Resolved]
  - Knee operation [Unknown]
  - Lacrimal disorder [Not Recovered/Not Resolved]
  - Nerve injury [Not Recovered/Not Resolved]
  - Peripheral swelling [Not Recovered/Not Resolved]
  - Joint swelling [Recovering/Resolving]
  - Surgery [Unknown]
  - Oral infection [Unknown]
  - Blood cobalt increased [Recovering/Resolving]
  - Infection [Unknown]
  - Hand deformity [Not Recovered/Not Resolved]
  - Musculoskeletal disorder [Unknown]
  - Fall [Not Recovered/Not Resolved]
  - Balance disorder [Not Recovered/Not Resolved]
  - Arthritis [Not Recovered/Not Resolved]
  - Spinal stenosis [Not Recovered/Not Resolved]
  - Asthenia [Recovering/Resolving]
  - Candida infection [Recovering/Resolving]
  - Weight decreased [Unknown]
  - Arthralgia [Not Recovered/Not Resolved]
  - Arthritis [Unknown]
  - Vertigo [Recovered/Resolved]
  - Joint stiffness [Not Recovered/Not Resolved]
  - Fall [Unknown]
  - Spinal pain [Not Recovered/Not Resolved]
  - Weight decreased [Recovered/Resolved]
  - Arthropathy [Unknown]
  - Ligament sprain [Not Recovered/Not Resolved]
  - Synovial disorder [Not Recovered/Not Resolved]
  - Haemarthrosis [Recovering/Resolving]
  - Hypoaesthesia [Not Recovered/Not Resolved]
  - Oral fungal infection [Recovering/Resolving]
  - Vitreous floaters [Unknown]

NARRATIVE: CASE EVENT DATE: 20210101
